FAERS Safety Report 15929519 (Version 3)
Quarter: 2019Q4

REPORT INFORMATION
  Report Type: Spontaneous
  Country: US (occurrence: US)
  Receive Date: 20190206
  Receipt Date: 20191114
  Transmission Date: 20200122
  Serious: No
  Sender: FDA-Public Use
  Company Number: US-SA-2019SA030840

PATIENT
  Age: 31 Year
  Sex: Female

DRUGS (1)
  1. AUBAGIO [Suspect]
     Active Substance: TERIFLUNOMIDE
     Indication: MULTIPLE SCLEROSIS
     Dosage: 14 MG, QD
     Route: 048
     Dates: start: 201901, end: 20191106

REACTIONS (7)
  - Skin mass [Unknown]
  - Diarrhoea [Unknown]
  - Abdominal discomfort [Unknown]
  - Rash pruritic [Unknown]
  - Exposure during pregnancy [Unknown]
  - Migraine [Unknown]
  - Rash [Unknown]

NARRATIVE: CASE EVENT DATE: 20190129
